FAERS Safety Report 21873634 (Version 1)
Quarter: 2023Q1

REPORT INFORMATION
  Report Type: Report from Study
  Country: US (occurrence: US)
  Receive Date: 20230117
  Receipt Date: 20230117
  Transmission Date: 20230418
  Serious: Yes (Other)
  Sender: FDA-Public Use
  Company Number: US-ALLERGAN-2301069US

PATIENT
  Sex: Female
  Weight: 73.923 kg

DRUGS (21)
  1. CYCLOSPORINE [Suspect]
     Active Substance: CYCLOSPORINE
     Indication: Product used for unknown indication
     Route: 047
  2. GAMMAGARD [Suspect]
     Active Substance: HUMAN IMMUNOGLOBULIN G
     Indication: Autonomic dysreflexia
     Dosage: 60 G, Q2WEEKS
     Route: 042
  3. GAMMAGARD [Suspect]
     Active Substance: HUMAN IMMUNOGLOBULIN G
     Indication: Autonomic neuropathy
  4. B12 ACTIVE [Concomitant]
  5. MAGNESIUM [Concomitant]
     Active Substance: MAGNESIUM
  6. ENDURALIGHT EXTREME [Concomitant]
  7. LIDOCAINE [Concomitant]
     Active Substance: LIDOCAINE
  8. OMEGA [Concomitant]
  9. FOLIC ACID [Concomitant]
     Active Substance: FOLIC ACID
  10. DROXIDOPA [Concomitant]
     Active Substance: DROXIDOPA
  11. VITAMIN D3 [Concomitant]
     Active Substance: CHOLECALCIFEROL
  12. ALLEGRA [Concomitant]
     Active Substance: FEXOFENADINE HYDROCHLORIDE
  13. HYDROXYCHLOROQUINE [Concomitant]
     Active Substance: HYDROXYCHLOROQUINE
  14. EPINEPHRINE SULFATE [Concomitant]
  15. PREVIDENT [Concomitant]
     Active Substance: SODIUM FLUORIDE
  16. DULOXETINE [Concomitant]
     Active Substance: DULOXETINE
  17. IBUPROFEN [Concomitant]
     Active Substance: IBUPROFEN
  18. ALBUTEROL [Concomitant]
     Active Substance: ALBUTEROL
  19. LORATADINE [Concomitant]
     Active Substance: LORATADINE
  20. LEVOTHYROXINE SODIUM [Concomitant]
     Active Substance: LEVOTHYROXINE SODIUM
     Route: 048
  21. HERBALS\TURMERIC [Concomitant]
     Active Substance: HERBALS\TURMERIC

REACTIONS (1)
  - Meningitis aseptic [Unknown]
